FAERS Safety Report 23187166 (Version 1)
Quarter: 2023Q4

REPORT INFORMATION
  Report Type: Spontaneous
  Country: PL (occurrence: None)
  Receive Date: 20231115
  Receipt Date: 20231115
  Transmission Date: 20240109
  Serious: Yes (Death)
  Sender: FDA-Public Use
  Company Number: PL-ROCHE-3454786

PATIENT
  Sex: Female

DRUGS (3)
  1. EVRYSDI [Suspect]
     Active Substance: RISDIPLAM
     Indication: Spinal muscular atrophy
     Dosage: BETWEEN JUL/2022 AND NOV/2023
     Route: 065
     Dates: start: 202207
  2. BRANAPLAM [Concomitant]
     Active Substance: BRANAPLAM
     Dates: start: 20190313, end: 20211230
  3. NUSINERSEN [Concomitant]
     Active Substance: NUSINERSEN
     Dates: start: 20210110

REACTIONS (1)
  - Cardiac arrest [Fatal]

NARRATIVE: CASE EVENT DATE: 20231031
